FAERS Safety Report 8607223-6 (Version None)
Quarter: 2012Q3

REPORT INFORMATION
  Report Type: 
  Country: None (occurrence: None)
  Receive Date: 20120821
  Receipt Date: 20120814
  Transmission Date: 20120928
  Serious: No
  Sender: FDA-Public Use
  Company Number: US-BIOGENIDEC-2012BI030930

PATIENT
  Age: 64 Year
  Sex: Female

DRUGS (2)
  1. AVONEX [Suspect]
     Indication: MULTIPLE SCLEROSIS
     Route: 030
     Dates: start: 20000601
  2. AVONEX [Suspect]
     Route: 030
     Dates: start: 20120601

REACTIONS (6)
  - INJECTION SITE HAEMORRHAGE [None]
  - PARAESTHESIA [None]
  - SENSORY DISTURBANCE [None]
  - BURSITIS [None]
  - INJECTION SITE HYPERTROPHY [None]
  - TENDON DISORDER [None]
